FAERS Safety Report 8262433-5 (Version None)
Quarter: 2012Q2

REPORT INFORMATION
  Report Type: 
  Country: None (occurrence: None)
  Receive Date: 20120405
  Receipt Date: 20120327
  Transmission Date: 20120825
  Serious: Yes (Hospitalization)
  Sender: FDA-Public Use
  Company Number: CA-JNJFOC-20120313399

PATIENT
  Sex: Female
  Weight: 57.5 kg

DRUGS (5)
  1. REMICADE [Suspect]
     Indication: CROHN'S DISEASE
     Route: 042
     Dates: start: 20060401
  2. IMURAN [Concomitant]
     Route: 065
  3. VITAMIN B-12 [Concomitant]
     Route: 065
  4. PREDNISONE TAB [Concomitant]
     Dosage: TAPERING DOSE
     Route: 065
  5. FERROUS FUMERATE [Concomitant]
     Route: 065

REACTIONS (2)
  - ANASTOMOTIC STENOSIS [None]
  - RASH [None]
